FAERS Safety Report 15957892 (Version 1)
Quarter: 2019Q1

REPORT INFORMATION
  Report Type: Report from Study
  Country: US (occurrence: US)
  Receive Date: 20190213
  Receipt Date: 20190213
  Transmission Date: 20190417
  Serious: Yes (Other)
  Sender: FDA-Public Use
  Company Number: US-TEVA-2019-US-1012582

PATIENT

DRUGS (1)
  1. TBO-FILGRASTIM [Suspect]
     Active Substance: TBO-FILGRASTIM
     Indication: NEUTROPENIA
     Route: 065

REACTIONS (5)
  - Thrombocytopenia [Unknown]
  - Cough [Unknown]
  - Dizziness [Unknown]
  - Dyspnoea [Unknown]
  - Fatigue [Unknown]
